FAERS Safety Report 4854930-7 (Version None)
Quarter: 2005Q4

REPORT INFORMATION
  Report Type: 
  Country: None (occurrence: None)
  Receive Date: 20051213
  Receipt Date: 20051201
  Transmission Date: 20060501
  Serious: Yes (Hospitalization)
  Sender: FDA-Public Use
  Company Number: 2005AP000982

PATIENT
  Age: 55 Year
  Sex: Female

DRUGS (4)
  1. DICLOFENAC SODIUM [Suspect]
     Indication: PNEUMONIA
     Dosage: PO
     Route: 048
     Dates: start: 20021201
  2. PENICILLIN [Concomitant]
  3. ATENOLOL [Concomitant]
  4. HYDROCHLOROTHIAIZDE (HYDROCHLOROTHIAZIDE) [Concomitant]

REACTIONS (10)
  - BLOOD POTASSIUM INCREASED [None]
  - CALCIUM IONISED INCREASED [None]
  - HAEMATURIA [None]
  - HAEMODIALYSIS [None]
  - HAEMOGLOBIN DECREASED [None]
  - PROTEINURIA [None]
  - RED BLOOD CELL COUNT DECREASED [None]
  - RENAL FAILURE ACUTE [None]
  - RENAL TUBULAR NECROSIS [None]
  - WHITE BLOOD CELL COUNT DECREASED [None]
